FAERS Safety Report 5528806-6 (Version None)
Quarter: 2007Q4

REPORT INFORMATION
  Report Type: 
  Country: None (occurrence: None)
  Receive Date: 20071119
  Receipt Date: 20070220
  Transmission Date: 20080405
  Serious: Yes (Other)
  Sender: FDA-Public Use
  Company Number: 34629

PATIENT
  Age: 53 Year
  Sex: Male

DRUGS (1)
  1. CHLOROPROCAINE HCL [Suspect]
     Indication: SPINAL ANAESTHESIA
     Dosage: 40MG
     Dates: start: 20070130

REACTIONS (1)
  - DRUG INEFFECTIVE [None]
